FAERS Safety Report 20893866 (Version 2)
Quarter: 2022Q3

REPORT INFORMATION
  Report Type: Spontaneous
  Country: US (occurrence: US)
  Receive Date: 20220531
  Receipt Date: 20220805
  Transmission Date: 20221027
  Serious: Yes (Congenital Anomaly, Other)
  Sender: FDA-Public Use
  Company Number: US-BRISTOL-MYERS SQUIBB COMPANY-2022-047233

PATIENT
  Age: 80 Year
  Sex: Male

DRUGS (13)
  1. ELIQUIS [Suspect]
     Active Substance: APIXABAN
     Indication: Product used for unknown indication
     Route: 048
  2. WARFARIN [Suspect]
     Active Substance: WARFARIN
     Indication: Product used for unknown indication
     Route: 065
  3. ASPIRIN [Concomitant]
     Active Substance: ASPIRIN
     Indication: Product used for unknown indication
     Route: 065
  4. TRAZODONE [Concomitant]
     Active Substance: TRAZODONE HYDROCHLORIDE
     Indication: Product used for unknown indication
     Route: 065
  5. METOPROLOL [Concomitant]
     Active Substance: METOPROLOL
     Indication: Product used for unknown indication
     Route: 048
  6. VENLAFAXINE [Concomitant]
     Active Substance: VENLAFAXINE HYDROCHLORIDE
     Indication: Product used for unknown indication
     Route: 048
  7. MELATONIN [Concomitant]
     Active Substance: MELATONIN
     Indication: Insomnia
     Route: 048
  8. TOCOPHEROL [TOCOPHERYL ACETATE] [Concomitant]
     Indication: Product used for unknown indication
     Route: 065
  9. BACILLUS COAGULANS [Concomitant]
     Active Substance: BACILLUS COAGULANS
     Indication: Product used for unknown indication
     Route: 048
  10. UNSPECIFIED INGREDIENT [Concomitant]
     Active Substance: UNSPECIFIED INGREDIENT
     Indication: Product used for unknown indication
     Route: 065
  11. SOTALOL [Concomitant]
     Active Substance: SOTALOL
     Indication: Product used for unknown indication
     Route: 048
  12. LISINOPRIL [Concomitant]
     Active Substance: LISINOPRIL
     Indication: Product used for unknown indication
     Route: 048
  13. GLUCOSAMINE [Concomitant]
     Active Substance: GLUCOSAMINE
     Indication: Product used for unknown indication
     Dosage: BED TIME
     Route: 048

REACTIONS (15)
  - Cerebrovascular accident [Unknown]
  - Prostate cancer [Unknown]
  - Hot flush [Unknown]
  - Iliac artery occlusion [Unknown]
  - Adverse event [Unknown]
  - Septic encephalopathy [Unknown]
  - Device related infection [Unknown]
  - Cardiac disorder [Unknown]
  - Hypertrophic cardiomyopathy [Unknown]
  - Urethral stricture traumatic [Unknown]
  - Urinary retention [Unknown]
  - Pyelonephritis chronic [Unknown]
  - Device occlusion [Unknown]
  - Cerebral infarction [Unknown]
  - Diverticulum [Unknown]

NARRATIVE: CASE EVENT DATE: 20211127
